FAERS Safety Report 4776876-5 (Version None)
Quarter: 2005Q3

REPORT INFORMATION
  Report Type: 
  Country: None (occurrence: None)
  Receive Date: 20050923
  Receipt Date: 20050914
  Transmission Date: 20060218
  Serious: Yes (Other)
  Sender: FDA-Public Use
  Company Number: PHBS2005JP13548

PATIENT
  Age: 14 Year
  Sex: Male

DRUGS (5)
  1. METHYLPREDNISOLONE [Concomitant]
     Indication: BONE MARROW TRANSPLANT
  2. PREDNISOLONE [Concomitant]
     Indication: BONE MARROW TRANSPLANT
  3. MYCOPHENOLATE MOFETIL [Concomitant]
     Indication: BONE MARROW TRANSPLANT
  4. METHOTREXATE [Concomitant]
     Indication: BONE MARROW TRANSPLANT
  5. CYCLOSPORINE [Suspect]
     Indication: BONE MARROW TRANSPLANT
     Route: 065

REACTIONS (1)
  - PNEUMATOSIS INTESTINALIS [None]
